FAERS Safety Report 10010024 (Version 2)
Quarter: 2014Q1

REPORT INFORMATION
  Report Type: Spontaneous
  Country: DE (occurrence: DE)
  Receive Date: 20140313
  Receipt Date: 20140313
  Transmission Date: 20141002
  Serious: Yes (Other)
  Sender: FDA-Public Use
  Company Number: DE-ABBVIE-11P-083-0855315-00

PATIENT
  Age: 51 Year
  Sex: Male

DRUGS (9)
  1. ADALIMUMAB [Suspect]
     Indication: PSORIASIS
     Route: 058
  2. CYCLOSPORINE A [Suspect]
     Indication: PSORIASIS
  3. INFLIXIMAB [Suspect]
     Indication: PSORIASIS
     Dosage: DURING WEEKS 0,2, 6, AND 14
     Route: 042
     Dates: start: 200510
  4. INFLIXIMAB [Suspect]
     Dosage: 6 INFUSIONS AT 8 WEEKS INTERVAL
  5. ETANERCEPT [Suspect]
     Indication: PSORIASIS
     Route: 058
     Dates: start: 200706
  6. PUVA CREAM [Concomitant]
     Indication: PSORIASIS
     Dosage: 14 SESSIONS
     Dates: start: 2000
  7. UVB [Concomitant]
     Indication: PSORIASIS
     Dosage: 27 SESSIONS
     Dates: start: 200504, end: 200505
  8. CALCIPOTRIOL [Concomitant]
     Indication: PSORIASIS
     Route: 061
     Dates: start: 1993
  9. CLOBETASOL [Concomitant]
     Indication: PSORIASIS

REACTIONS (2)
  - Malignant melanoma stage I [Unknown]
  - Blood pressure increased [Unknown]
